FAERS Safety Report 5297044-7 (Version None)
Quarter: 2007Q1

REPORT INFORMATION
  Report Type: 
  Country: None (occurrence: None)
  Receive Date: 20070201
  Receipt Date: 20070112
  Transmission Date: 20070707
  Serious: No
  Sender: FDA-Public Use
  Company Number: 2006PV022456

PATIENT
  Age: 61 Year
  Sex: Male
  Weight: 111.1313 kg

DRUGS (8)
  1. BYETTA [Suspect]
     Indication: DIABETES MELLITUS NON-INSULIN-DEPENDENT
     Dosage: SEE IMAGE
     Route: 058
     Dates: start: 20060501, end: 20060731
  2. BYETTA [Suspect]
     Indication: DIABETES MELLITUS NON-INSULIN-DEPENDENT
     Dosage: SEE IMAGE
     Route: 058
     Dates: start: 20060801
  3. ACTOS [Concomitant]
  4. METAGLIP [Concomitant]
  5. GLUCOPHAGE [Concomitant]
  6. ALLOPURINOL [Concomitant]
  7. BLOOD PRESSURE MEDICATION [Concomitant]
  8. LIPITOR [Concomitant]

REACTIONS (4)
  - DIARRHOEA [None]
  - FAECAL INCONTINENCE [None]
  - INJECTION SITE BRUISING [None]
  - INJECTION SITE PAIN [None]
